FAERS Safety Report 21884269 (Version 5)
Quarter: 2023Q2

REPORT INFORMATION
  Report Type: Report from Study
  Country: CA (occurrence: CA)
  Receive Date: 20230119
  Receipt Date: 20230509
  Transmission Date: 20230722
  Serious: Yes (Other)
  Sender: FDA-Public Use
  Company Number: CA-JNJFOC-20221247816

PATIENT
  Age: 47 Year
  Sex: Female

DRUGS (2)
  1. SIMPONI [Suspect]
     Active Substance: GOLIMUMAB
     Indication: Psoriatic arthropathy
     Dosage: THERAPY START DATE WAS ALSO REPORTED AS 06-MAY-2022.
     Route: 058
     Dates: start: 20220504, end: 20230321
  2. SIMPONI [Suspect]
     Active Substance: GOLIMUMAB
     Route: 058
     Dates: start: 20230321, end: 20230411

REACTIONS (4)
  - Psoriatic arthropathy [Not Recovered/Not Resolved]
  - Viral infection [Unknown]
  - Influenza [Not Recovered/Not Resolved]
  - Drug ineffective [Unknown]

NARRATIVE: CASE EVENT DATE: 20230106
